FAERS Safety Report 5903381-2 (Version None)
Quarter: 2008Q3

REPORT INFORMATION
  Report Type: 
  Country: None (occurrence: None)
  Receive Date: 20080926
  Receipt Date: 20080912
  Transmission Date: 20090109
  Serious: Yes (Other)
  Sender: FDA-Public Use
  Company Number: 230176J08GBR

PATIENT
  Sex: Female
  Weight: 62 kg

DRUGS (6)
  1. REBIF [Suspect]
     Indication: MULTIPLE SCLEROSIS
     Dosage: 44 MCG, 3 IN 1 WEEKS, SUBCUTANEOUS; 22 MCG, 3 IN 1 WEEKS, SUBCUTANEOUS
     Route: 058
     Dates: start: 20080303, end: 20080317
  2. REBIF [Suspect]
     Indication: MULTIPLE SCLEROSIS
     Dosage: 44 MCG, 3 IN 1 WEEKS, SUBCUTANEOUS; 22 MCG, 3 IN 1 WEEKS, SUBCUTANEOUS
     Route: 058
     Dates: start: 20080501
  3. GABAPENTIN [Concomitant]
  4. TRAMADOL /00599201/ [Concomitant]
  5. BACLOFEN [Concomitant]
  6. PSYCHOSTIMULANTS AND NOOTROPICS [Concomitant]

REACTIONS (6)
  - MULTIPLE SCLEROSIS RELAPSE [None]
  - MUSCLE SPASMS [None]
  - OPTIC NEURITIS [None]
  - SCIATICA [None]
  - SKIN INFLAMMATION [None]
  - SPINAL FRACTURE [None]
